FAERS Safety Report 9112969 (Version 2)
Quarter: 2013Q1

REPORT INFORMATION
  Report Type: Spontaneous
  Country: BR (occurrence: BR)
  Receive Date: 20130211
  Receipt Date: 20130314
  Transmission Date: 20140127
  Serious: Yes (Other)
  Sender: FDA-Public Use
  Company Number: BR-PFIZER INC-2012079695

PATIENT
  Age: 52 Year
  Sex: Male
  Weight: 85 kg

DRUGS (8)
  1. SUTENT [Suspect]
     Indication: RENAL CELL CARCINOMA
     Dosage: 1 TABLET (50 MG), 1X/DAY (CYCLE 4 TO 2)
     Route: 048
     Dates: start: 20120317
  2. SUTENT [Suspect]
     Dosage: 37.5 MG, 1X/DAY
     Route: 048
  3. SUTENT [Suspect]
     Dosage: 50 MG, 1X/DAY
     Route: 048
  4. ATENOLOL [Concomitant]
     Dosage: 50 MG TWICE DAILY
  5. DIOVAN [Concomitant]
     Dosage: 1 TABLET (320+12.5MG) A DAY
  6. VYTORIN [Concomitant]
     Dosage: 1 TABLET (10MG/20MG) A DAY
  7. LIPANON [Concomitant]
     Dosage: 1 TABLET (250 MG) A DAY
  8. IMOSEC [Concomitant]
     Dosage: 1 DF, AS NEEDED

REACTIONS (10)
  - Dysentery [Not Recovered/Not Resolved]
  - Blood pressure increased [Unknown]
  - Gastrointestinal motility disorder [Unknown]
  - Gastrointestinal sounds abnormal [Unknown]
  - Flatulence [Unknown]
  - Headache [Unknown]
  - Abdominal pain [Not Recovered/Not Resolved]
  - Tooth discolouration [Unknown]
  - Skin wound [Unknown]
  - Diarrhoea [Unknown]
